FAERS Safety Report 9621043 (Version 2)
Quarter: 2013Q4

REPORT INFORMATION
  Report Type: Report from Study
  Country: AZ (occurrence: AZ)
  Receive Date: 20131015
  Receipt Date: 20131015
  Transmission Date: 20140711
  Serious: Yes (Other)
  Sender: FDA-Public Use
  Company Number: PHHY2013AZ102067

PATIENT
  Age: 54 Year
  Sex: Male

DRUGS (1)
  1. GLIVEC [Suspect]
     Indication: CHRONIC MYELOID LEUKAEMIA
     Dosage: 600 MG, UNK
     Route: 048

REACTIONS (4)
  - Hepatic steatosis [Unknown]
  - Hepatomegaly [Unknown]
  - Leukocytosis [Unknown]
  - Thrombocytosis [Unknown]
